FAERS Safety Report 4469332-5 (Version None)
Quarter: 2004Q4

REPORT INFORMATION
  Report Type: 
  Country: None (occurrence: None)
  Receive Date: 20041008
  Receipt Date: 20040108
  Transmission Date: 20050328
  Serious: No
  Sender: FDA-Public Use
  Company Number: US-BRISTOL-MYERS SQUIBB COMPANY-12474151

PATIENT
  Age: 81 Year
  Sex: Female
  Weight: 58 kg

DRUGS (3)
  1. AVAPRO [Suspect]
     Dosage: DOSING: 300 MG 1/2 TAB AT BEDTIME
     Route: 048
     Dates: start: 20031226, end: 20040108
  2. SYNTHROID [Concomitant]
  3. ASPIRIN [Concomitant]

REACTIONS (1)
  - MYALGIA [None]
